FAERS Safety Report 5649180-0 (Version None)
Quarter: 2008Q1

REPORT INFORMATION
  Report Type: 
  Country: None (occurrence: None)
  Receive Date: 20080131
  Receipt Date: 20071101
  Transmission Date: 20080703
  Serious: No
  Sender: FDA-Public Use
  Company Number: US200709006134

PATIENT
  Age: 68 Year
  Sex: Female
  Weight: 72.6 kg

DRUGS (9)
  1. BYETTA [Suspect]
     Indication: TYPE 2 DIABETES MELLITUS
     Dosage: 5 UG, 2/D, SUBCUTANEOUS ; 10 UG, 2/D, SUBCUTANEOUS
     Route: 058
     Dates: start: 20051009, end: 20050101
  2. BYETTA [Suspect]
     Indication: TYPE 2 DIABETES MELLITUS
     Dosage: 5 UG, 2/D, SUBCUTANEOUS ; 10 UG, 2/D, SUBCUTANEOUS
     Route: 058
     Dates: start: 20050101
  3. METFORMIN /00082701/ (METFORMIN) [Concomitant]
  4. GLIMEPIRIDE [Concomitant]
  5. GLYBURIDE [Concomitant]
  6. FOSAMAX [Concomitant]
  7. CALCIUM (CALCIUM) [Concomitant]
  8. B12 (CYANOCOBALAMIN-TANNIN COMPLEX) [Concomitant]
  9. ACTONEL [Concomitant]

REACTIONS (18)
  - ABDOMINAL PAIN [None]
  - BLOOD GLUCOSE DECREASED [None]
  - BLOOD GLUCOSE INCREASED [None]
  - BREAST DISORDER [None]
  - COLON ADENOMA [None]
  - CORNEAL OPACITY [None]
  - DIZZINESS [None]
  - FEELING ABNORMAL [None]
  - GASTRITIS [None]
  - GASTROINTESTINAL HAEMORRHAGE [None]
  - HYPERTHYROIDISM [None]
  - HYPOTENSION [None]
  - INTESTINAL MUCOSAL HYPERTROPHY [None]
  - MICROCYTIC ANAEMIA [None]
  - OEDEMA PERIPHERAL [None]
  - OSTEOARTHRITIS [None]
  - UPPER RESPIRATORY TRACT INFECTION [None]
  - WEIGHT DECREASED [None]
